FAERS Safety Report 7771777-2 (Version None)
Quarter: 2011Q3

REPORT INFORMATION
  Report Type: 
  Country: None (occurrence: None)
  Receive Date: 20110922
  Receipt Date: 20110912
  Transmission Date: 20111222
  Serious: Yes (Hospitalization)
  Sender: FDA-Public Use
  Company Number: DE-ELI_LILLY_AND_COMPANY-DE201108005894

PATIENT
  Sex: Male

DRUGS (3)
  1. AMARYL [Concomitant]
     Dosage: 2 MG, QD
     Route: 048
     Dates: start: 20110330
  2. BYETTA [Suspect]
     Indication: TYPE 2 DIABETES MELLITUS
     Dosage: 10 UG, BID
     Route: 058
     Dates: start: 20110330
  3. ACTOS [Concomitant]
     Dosage: 45 MG, QD
     Route: 048
     Dates: start: 20110330

REACTIONS (2)
  - PARKINSON'S DISEASE [None]
  - TREMOR [None]
